FAERS Safety Report 5238270-2 (Version None)
Quarter: 2007Q1

REPORT INFORMATION
  Report Type: 
  Country: None (occurrence: None)
  Receive Date: 20070209
  Receipt Date: 20070209
  Transmission Date: 20070707
  Serious: Yes (Hospitalization)
  Sender: FDA-Public Use
  Company Number: None

PATIENT
  Age: 72 Year
  Sex: Male
  Weight: 152 kg

DRUGS (11)
  1. GATIFLOXACIN [Suspect]
     Indication: DIVERTICULITIS
     Dosage: 400 MG QD PO
     Route: 048
     Dates: start: 20050522, end: 20050528
  2. METRONIDAZOLE [Suspect]
     Indication: DIVERTICULITIS
     Dosage: 500 MG TID PO
     Route: 048
     Dates: start: 20050522, end: 20050528
  3. FUROSEMIDE [Concomitant]
  4. VITAMIN D [Concomitant]
  5. TRAMADOL HCL [Concomitant]
  6. RANITIDINE [Concomitant]
  7. POTASSIUM CHLORIDE [Concomitant]
  8. OMEPRAZOLE [Concomitant]
  9. METOPROLOL SUCCINATE [Concomitant]
  10. GEMFIBROZIL [Concomitant]
  11. CALCIUM CARBONATE [Concomitant]

REACTIONS (3)
  - HAEMORRHOIDS [None]
  - INTERNATIONAL NORMALISED RATIO INCREASED [None]
  - RECTAL HAEMORRHAGE [None]
